FAERS Safety Report 13086718 (Version 1)
Quarter: 2017Q1

REPORT INFORMATION
  Report Type: Spontaneous
  Country: US (occurrence: US)
  Receive Date: 20170104
  Receipt Date: 20170104
  Transmission Date: 20170428
  Serious: No
  Sender: FDA-Public Use
  Company Number: US-CELGENEUS-USA-2016120702

PATIENT
  Sex: Female

DRUGS (1)
  1. OTEZLA [Suspect]
     Active Substance: APREMILAST
     Indication: PSORIATIC ARTHROPATHY
     Dosage: 60 MG
     Route: 048

REACTIONS (5)
  - Cough [Unknown]
  - Nausea [Unknown]
  - Pulmonary pain [Unknown]
  - Nasopharyngitis [Unknown]
  - Diarrhoea [Unknown]
